FAERS Safety Report 11976617 (Version 1)
Quarter: 2016Q1

REPORT INFORMATION
  Report Type: Spontaneous
  Country: JP (occurrence: JP)
  Receive Date: 20160129
  Receipt Date: 20160129
  Transmission Date: 20160526
  Serious: Yes (Death, Life-Threatening, Hospitalization)
  Sender: FDA-Public Use
  Company Number: JP-ROCHE-1654205

PATIENT
  Age: 66 Year
  Sex: Male
  Weight: 71 kg

DRUGS (6)
  1. MICOMBI BP [Concomitant]
     Indication: HYPERTENSION
     Route: 048
     Dates: start: 20140618, end: 20151011
  2. AMLODIN [Concomitant]
     Active Substance: AMLODIPINE BESYLATE
     Indication: HYPERTENSION
     Route: 048
     Dates: start: 20150422, end: 20151011
  3. OLMETEC [Concomitant]
     Active Substance: OLMESARTAN MEDOXOMIL
     Indication: HYPERTENSION
     Route: 048
     Dates: start: 20150422, end: 20151011
  4. AVASTIN [Suspect]
     Active Substance: BEVACIZUMAB
     Indication: GLIOBLASTOMA
     Dosage: TREATMENT LINE: 2ND LINE?COMPLETED TREATMENT CYCLE NUMBER: 30
     Route: 041
     Dates: start: 20140507, end: 20151007
  5. FLIVAS [Concomitant]
     Active Substance: NAFTOPIDIL
     Indication: BENIGN PROSTATIC HYPERPLASIA
     Dosage: 0.5 MG
     Route: 048
     Dates: start: 20140825, end: 20151011
  6. ARTIST [Concomitant]
     Active Substance: CARVEDILOL
     Indication: HYPERTENSION
     Route: 048
     Dates: start: 20150624, end: 20151011

REACTIONS (4)
  - Large intestine perforation [Recovering/Resolving]
  - Ileus paralytic [Not Recovered/Not Resolved]
  - Glioblastoma [Fatal]
  - Peritonitis [Recovering/Resolving]

NARRATIVE: CASE EVENT DATE: 20151007
